FAERS Safety Report 13929319 (Version 1)
Quarter: 2017Q3

REPORT INFORMATION
  Report Type: Spontaneous
  Country: US (occurrence: US)
  Receive Date: 20170901
  Receipt Date: 20170901
  Transmission Date: 20171127
  Serious: No
  Sender: FDA-Public Use
  Company Number: US-009507513-1708USA013557

PATIENT
  Age: 50 Year
  Sex: Male

DRUGS (4)
  1. TRIAMCINOLONE [Concomitant]
     Active Substance: TRIAMCINOLONE
  2. OCTREOTIDE. [Concomitant]
     Active Substance: OCTREOTIDE
  3. BETAMETHASONE VALERATE. [Suspect]
     Active Substance: BETAMETHASONE VALERATE
     Route: 061
  4. HYALURONIDASE [Concomitant]
     Active Substance: HYALURONIDASE

REACTIONS (1)
  - Drug ineffective [Unknown]
